FAERS Safety Report 19385353 (Version 14)
Quarter: 2023Q4

REPORT INFORMATION
  Report Type: Report from Study
  Country: CO (occurrence: CO)
  Receive Date: 20210607
  Receipt Date: 20231005
  Transmission Date: 20240110
  Serious: Yes (Hospitalization)
  Sender: FDA-Public Use
  Company Number: CO-TAKEDA-CO201511094

PATIENT
  Age: 38 Year
  Sex: Female
  Weight: 60 kg

DRUGS (1)
  1. VELAGLUCERASE ALFA [Suspect]
     Active Substance: VELAGLUCERASE ALFA
     Indication: Gaucher^s disease
     Dosage: 3200 INTERNATIONAL UNIT, 2/MONTH
     Route: 042
     Dates: start: 20131004

REACTIONS (15)
  - Drug intolerance [Recovering/Resolving]
  - Pain [Unknown]
  - Abdominal pain upper [Recovering/Resolving]
  - Varicose vein [Recovering/Resolving]
  - Varicophlebitis [Recovering/Resolving]
  - Erythema [Recovering/Resolving]
  - Weight decreased [Unknown]
  - Inflammation [Unknown]
  - Mobility decreased [Unknown]
  - Weight increased [Unknown]
  - Product formulation issue [Unknown]
  - Product prescribing error [Unknown]
  - Incorrect dose administered [Unknown]
  - Product dose omission issue [Unknown]
  - Inappropriate schedule of product administration [Unknown]

NARRATIVE: CASE EVENT DATE: 20150826
